FAERS Safety Report 5382344-2 (Version None)
Quarter: 2007Q2

REPORT INFORMATION
  Report Type: 
  Country: None (occurrence: None)
  Receive Date: 20070629
  Receipt Date: 20070316
  Transmission Date: 20071010
  Serious: Yes (Other)
  Sender: FDA-Public Use
  Company Number: US200702001025

PATIENT
  Age: 74 Year
  Sex: Female

DRUGS (5)
  1. HUMULIN N [Suspect]
     Indication: DIABETES MELLITUS
  2. HUMALOG MIX 75/25 [Suspect]
     Indication: DIABETES MELLITUS
  3. HUMALOG [Suspect]
     Indication: DIABETES MELLITUS
  4. HUMULIN  N PEN (HUMULIN N  PEN) PEN,DISPOSABLE [Concomitant]
  5. HUMALOG MIX 25L / 75NPL PEN (HUMALOG 25L / 75NPL PEN) PEN,DISPOSABLE [Concomitant]

REACTIONS (1)
  - DIABETIC RETINOPATHY [None]
